FAERS Safety Report 5044764-5 (Version None)
Quarter: 2006Q3

REPORT INFORMATION
  Report Type: 
  Country: None (occurrence: None)
  Receive Date: 20060705
  Receipt Date: 20060629
  Transmission Date: 20061208
  Serious: Yes (Hospitalization, Other)
  Sender: FDA-Public Use
  Company Number: 2006US003162

PATIENT
  Age: 50 Year
  Sex: Female
  Weight: 68.8 kg

DRUGS (17)
  1. ALOXI [Suspect]
     Indication: PROPHYLAXIS OF NAUSEA AND VOMITING
     Dosage: 0.25 MG, SINGLE, INTRAVENOUS
     Route: 042
     Dates: start: 20060516, end: 20060516
  2. ALOXI [Suspect]
     Indication: PROPHYLAXIS OF NAUSEA AND VOMITING
     Dosage: 0.25 MG, SINGLE, INTRAVENOUS
     Route: 042
     Dates: start: 20060606, end: 20060606
  3. ADRIAMYCIN PFS [Suspect]
     Indication: BREAST CANCER
     Dosage: 102 MG, SINGLE, INTRAVENOUS
     Route: 042
     Dates: start: 20060516, end: 20060516
  4. ADRIAMYCIN PFS [Suspect]
     Indication: BREAST CANCER
     Dosage: 102 MG, SINGLE, INTRAVENOUS
     Route: 042
     Dates: start: 20060606, end: 20060606
  5. CYTOXAN [Suspect]
     Indication: BREAST CANCER
     Dosage: 1000 MG, SINGLE, INTRAVENOUS
     Route: 042
     Dates: start: 20060516, end: 20060516
  6. CYTOXAN [Suspect]
     Indication: BREAST CANCER
     Dosage: 1000 MG, SINGLE, INTRAVENOUS
     Route: 042
     Dates: start: 20060606, end: 20060606
  7. DECADRON /00016001/ (DEXAMETHASONE) [Concomitant]
  8. EMEND [Concomitant]
  9. NEUPOGEN [Concomitant]
  10. CEFTIN [Concomitant]
  11. PRILOSEC [Concomitant]
  12. ASCORBIC ACID [Concomitant]
  13. VITAMIN D [Concomitant]
  14. ZANTAC [Concomitant]
  15. ZYRTEC /00884302/ (CETIRIZINE HYDROCHLORIDE) [Concomitant]
  16. NORTRIPTYLINE HCL [Concomitant]
  17. PERCOCET /00867901/ (OXYCODONE HYDROCHLORIDE, PARACETAMOL) [Concomitant]

REACTIONS (15)
  - BLOOD ALKALINE PHOSPHATASE INCREASED [None]
  - BLOOD CALCIUM DECREASED [None]
  - BLOOD POTASSIUM DECREASED [None]
  - DYSPNOEA [None]
  - GLOBULINS INCREASED [None]
  - HYPERSENSITIVITY [None]
  - LOCAL SWELLING [None]
  - PHARYNGEAL OEDEMA [None]
  - PRURITUS [None]
  - PULMONARY CONGESTION [None]
  - RASH [None]
  - RASH ERYTHEMATOUS [None]
  - SWELLING FACE [None]
  - TACHYCARDIA [None]
  - URTICARIA [None]
